FAERS Safety Report 9248128 (Version 1)
Quarter: 2013Q1

REPORT INFORMATION
  Report Type: Spontaneous
  Country: US (occurrence: None)
  Receive Date: 20130305
  Receipt Date: 20130305
  Transmission Date: 20140127
  Serious: Yes (Other)
  Sender: FDA-Public Use
  Company Number: 163-21880-12101004

PATIENT
  Age: 59 Year
  Sex: Female

DRUGS (4)
  1. REVLIMID [Suspect]
     Indication: PLASMA CELL MYELOMA
     Dosage: 1 IN 1 D
     Route: 048
     Dates: start: 201103
  2. LEVOTHYROXIN (LEVOTHYROXINE SODIUM) [Concomitant]
  3. CALCIUM +D(OS-CAL) [Concomitant]
  4. VITAMINS [Concomitant]

REACTIONS (1)
  - White blood cell count decreased [None]
